FAERS Safety Report 9929966 (Version 1)
Quarter: 2014Q1

REPORT INFORMATION
  Report Type: Spontaneous
  Country: US (occurrence: US)
  Receive Date: 20140227
  Receipt Date: 20140227
  Transmission Date: 20141002
  Serious: Yes (Death, Other)
  Sender: FDA-Public Use
  Company Number: PHHY2014US020679

PATIENT
  Age: 69 Year
  Sex: Female

DRUGS (4)
  1. METOCLOPRAMIDE [Suspect]
     Indication: HEADACHE
  2. HYDROMORPHONE [Suspect]
     Indication: HEADACHE
  3. DIPYRIDAMOLE [Suspect]
  4. LOVENOX [Concomitant]
     Indication: TROPONIN INCREASED
     Dosage: 1 MG/KG, UNK
     Route: 058

REACTIONS (6)
  - Death [Fatal]
  - Subarachnoid haemorrhage [Unknown]
  - Hypotension [Unknown]
  - Unresponsive to stimuli [Unknown]
  - Idiosyncratic drug reaction [Unknown]
  - Drug ineffective [Unknown]
